FAERS Safety Report 24579901 (Version 1)
Quarter: 2024Q4

REPORT INFORMATION
  Report Type: Spontaneous
  Country: US (occurrence: None)
  Receive Date: 20241104
  Receipt Date: 20241104
  Transmission Date: 20250115
  Serious: Yes (unspecified)
  Sender: Public
  Company Number: None

PATIENT
  Age: 43 Year
  Sex: Female
  Weight: 50 kg

DRUGS (1)
  1. GADOTERIDOL [Suspect]
     Active Substance: GADOTERIDOL
     Indication: Scan with contrast
     Route: 042
     Dates: start: 20240731, end: 20240731

REACTIONS (4)
  - Cough [None]
  - Oral pruritus [None]
  - Ovarian cyst [None]
  - Sneezing [None]

NARRATIVE: CASE EVENT DATE: 20240731
